FAERS Safety Report 5153753-1 (Version None)
Quarter: 2006Q4

REPORT INFORMATION
  Report Type: 
  Country: None (occurrence: None)
  Receive Date: 20061120
  Receipt Date: 20061110
  Transmission Date: 20070319
  Serious: Yes (Other)
  Sender: FDA-Public Use
  Company Number: CH-ELI_LILLY_AND_COMPANY-CH200611002023

PATIENT
  Age: 21 Year
  Sex: Female

DRUGS (5)
  1. ZYPREXA [Suspect]
     Indication: BIPOLAR DISORDER
     Dosage: UNK
  2. LITHIOFOR /01629101/ [Concomitant]
     Indication: BIPOLAR DISORDER
  3. ENTUMIN                                 /ITA/ [Concomitant]
     Indication: BIPOLAR DISORDER
     Route: 048
  4. COCAINE [Concomitant]
  5. CANNABIS [Concomitant]

REACTIONS (1)
  - DRUG EXPOSURE DURING PREGNANCY [None]
